FAERS Safety Report 5227589-7 (Version None)
Quarter: 2007Q1

REPORT INFORMATION
  Report Type: 
  Country: None (occurrence: None)
  Receive Date: 20070202
  Receipt Date: 20070125
  Transmission Date: 20070707
  Serious: Yes (Other)
  Sender: FDA-Public Use
  Company Number: US-ELI_LILLY_AND_COMPANY-US200701006226

PATIENT
  Age: 49 Year
  Sex: Female
  Weight: 79.365 kg

DRUGS (7)
  1. ZYPREXA [Suspect]
     Indication: DEPRESSION
     Dosage: 2.5 MG, UNK
     Dates: start: 20020101, end: 20040101
  2. RISPERDAL [Concomitant]
     Dates: start: 20020101, end: 20030101
  3. TRIFLUOPERAZINE HCL [Concomitant]
     Dates: start: 20020101, end: 20040101
  4. BUPROPION HCL [Concomitant]
     Dates: start: 20020101
  5. SYMBYAX [Suspect]
     Dates: start: 20020101, end: 20040101
  6. SERTRALINE [Concomitant]
     Dates: start: 20020101
  7. TRAZODONE HCL [Concomitant]
     Dates: start: 20030101, end: 20040101

REACTIONS (6)
  - DIABETES MELLITUS [None]
  - HYPERINSULINISM [None]
  - HYPOGLYCAEMIA [None]
  - LACTIC ACIDOSIS [None]
  - METABOLIC DISORDER [None]
  - VISION BLURRED [None]
